FAERS Safety Report 8290801-4 (Version None)
Quarter: 2012Q2

REPORT INFORMATION
  Report Type: 
  Country: None (occurrence: None)
  Receive Date: 20120417
  Receipt Date: 20120409
  Transmission Date: 20120825
  Serious: Yes (Hospitalization)
  Sender: FDA-Public Use
  Company Number: US-CELGENEUS-163-21880-12040900

PATIENT
  Sex: Male
  Weight: 75.818 kg

DRUGS (7)
  1. ACYCLOVIR [Concomitant]
     Dosage: 400 MILLIGRAM
     Route: 065
  2. TAMSULOSIN HCL [Concomitant]
     Dosage: .4 MILLIGRAM
     Route: 065
  3. AMIODARONE HCL [Concomitant]
     Route: 065
     Dates: end: 20120412
  4. REVLIMID [Suspect]
     Indication: MULTIPLE MYELOMA
     Dosage: 5 MILLIGRAM
     Route: 048
     Dates: start: 20090101, end: 20120229
  5. FUROSEMIDE [Concomitant]
     Dosage: 40 MILLIGRAM
     Route: 065
  6. WARFARIN SODIUM [Concomitant]
     Route: 065
  7. FAMOTIDINE [Concomitant]
     Route: 065

REACTIONS (3)
  - AORTIC VALVE DISEASE [None]
  - ARRHYTHMIA [None]
  - CARDIAC DISORDER [None]
